FAERS Safety Report 15686888 (Version 1)
Quarter: 2018Q4

REPORT INFORMATION
  Report Type: Spontaneous
  Country: US (occurrence: US)
  Receive Date: 20181204
  Receipt Date: 20181204
  Transmission Date: 20190205
  Serious: No
  Sender: FDA-Public Use
  Company Number: US-PFIZER INC-2018490785

PATIENT
  Age: 76 Year
  Sex: Male

DRUGS (1)
  1. SOMAVERT [Suspect]
     Active Substance: PEGVISOMANT
     Dosage: 25 MG, 5 DAYS A WEEK (MON-FRI)

REACTIONS (8)
  - Blood glucose increased [Unknown]
  - Blood creatinine increased [Unknown]
  - Haemoglobin increased [Unknown]
  - Blood urea increased [Unknown]
  - Red cell distribution width increased [Unknown]
  - Product use issue [Unknown]
  - Blood parathyroid hormone increased [Unknown]
  - Haematocrit decreased [Unknown]
